FAERS Safety Report 14419322 (Version 1)
Quarter: 2018Q1

REPORT INFORMATION
  Report Type: Spontaneous
  Country: US (occurrence: US)
  Receive Date: 20180120
  Receipt Date: 20180120
  Transmission Date: 20180509
  Serious: Yes (Life-Threatening, Hospitalization, Disabling, Other)
  Sender: FDA-Public Use
  Company Number: None

PATIENT
  Age: 31 Year
  Sex: Female
  Weight: 41.4 kg

DRUGS (1)
  1. CYMBALTA [Suspect]
     Active Substance: DULOXETINE HYDROCHLORIDE
     Indication: PAIN
     Route: 048

REACTIONS (6)
  - Hallucination [None]
  - Suicidal ideation [None]
  - Depressed mood [None]
  - Dependence [None]
  - Seizure [None]
  - Withdrawal syndrome [None]

NARRATIVE: CASE EVENT DATE: 20151206
